FAERS Safety Report 9224463 (Version 1)
Quarter: 2013Q1

REPORT INFORMATION
  Report Type: Spontaneous
  Country: US (occurrence: None)
  Receive Date: 20120912
  Receipt Date: 20120912
  Transmission Date: 20140127
  Serious: No
  Sender: FDA-Public Use
  Company Number: 2012SP025491

PATIENT
  Age: 68 Year
  Sex: Male

DRUGS (4)
  1. VICTRELIS 200 MG [Suspect]
     Indication: HEPATITIS C
     Route: 048
     Dates: start: 20120326
  2. PEGASYS [Suspect]
     Indication: PRODUCT USED FOR UNKNOWN INDICATION
  3. RIBASPHERE [Suspect]
  4. TYLENOL [Concomitant]

REACTIONS (6)
  - Psoriasis [None]
  - Nodule [None]
  - Rash [None]
  - Nausea [None]
  - Diarrhoea [None]
  - Dysgeusia [None]
